FAERS Safety Report 17366020 (Version 1)
Quarter: 2020Q1

REPORT INFORMATION
  Report Type: Spontaneous
  Country: NL (occurrence: NL)
  Receive Date: 20200204
  Receipt Date: 20200204
  Transmission Date: 20200409
  Serious: Yes (Death, Hospitalization)
  Sender: FDA-Public Use
  Company Number: NL-PFIZER INC-2020038872

PATIENT
  Age: 42 Year
  Sex: Female

DRUGS (4)
  1. DEXAMETHASONE. [Suspect]
     Active Substance: DEXAMETHASONE
     Dosage: 10 MG, UNK
     Route: 042
  2. CEFUROXIME. [Concomitant]
     Active Substance: CEFUROXIME
     Indication: PNEUMONIA
     Dosage: 1500 MG, 3X/DAY
  3. DEXAMETHASONE. [Suspect]
     Active Substance: DEXAMETHASONE
     Indication: VULVAL CANCER METASTATIC
     Dosage: 8 MG, 1X/DAY
     Route: 042
  4. TOPOTECAN HYDROCHLORIDE. [Suspect]
     Active Substance: TOPOTECAN HYDROCHLORIDE
     Indication: VULVAL CANCER METASTATIC
     Dosage: UNK

REACTIONS (11)
  - Dizziness [Fatal]
  - Off label use [Unknown]
  - Brain compression [Fatal]
  - Central nervous system lesion [Fatal]
  - Nausea [Fatal]
  - Headache [Fatal]
  - Dyspnoea [Fatal]
  - Neoplasm progression [Fatal]
  - Vision blurred [Fatal]
  - Hydrocephalus [Fatal]
  - Product use in unapproved indication [Unknown]
